FAERS Safety Report 5469864-7 (Version None)
Quarter: 2007Q3

REPORT INFORMATION
  Report Type: 
  Country: None (occurrence: None)
  Receive Date: 20070927
  Receipt Date: 20070913
  Transmission Date: 20080115
  Serious: Yes (Other)
  Sender: FDA-Public Use
  Company Number: JP-ELI_LILLY_AND_COMPANY-JP200709004004

PATIENT
  Age: 71 Year
  Sex: Male
  Weight: 55 kg

DRUGS (9)
  1. PEMETREXED [Suspect]
     Indication: PLEURAL MESOTHELIOMA MALIGNANT
     Dosage: 500 MG, OTHER
     Route: 042
     Dates: start: 20070806, end: 20070806
  2. CISPLATIN [Suspect]
     Indication: PLEURAL MESOTHELIOMA MALIGNANT
     Dosage: 80 MG, OTHER
     Route: 042
     Dates: start: 20070806, end: 20070806
  3. FOLIAMIN [Concomitant]
     Dosage: 5 MG, DAILY (1/D)
     Route: 048
     Dates: start: 20070728, end: 20070830
  4. METHYCOBAL [Concomitant]
     Dosage: 1 MG, OTHER
     Route: 030
     Dates: start: 20070728, end: 20070728
  5. OMEPRAZOLE [Concomitant]
     Indication: PROPHYLAXIS
     Dosage: 10 MG, DAILY (1/D)
     Route: 048
     Dates: start: 20070719, end: 20070830
  6. OXYCONTIN [Concomitant]
     Indication: CANCER PAIN
     Dosage: 10 MG, DAILY (1/D)
     Route: 048
     Dates: start: 20070719, end: 20070823
  7. MAGNESIUM OXIDE [Concomitant]
     Indication: PROPHYLAXIS
     Dosage: 1.5 G, DAILY (1/D)
     Route: 048
     Dates: start: 20070724, end: 20070830
  8. DECADRON                                /CAN/ [Concomitant]
     Indication: PROPHYLAXIS
     Dosage: 1 MG, DAILY (1/D)
     Route: 048
     Dates: start: 20070802, end: 20070830
  9. DIHYDROCODEINE PHOSPHATE [Concomitant]
     Indication: PROPHYLAXIS
     Dosage: 1 G, OTHER
     Route: 048
     Dates: start: 20070801, end: 20070830

REACTIONS (1)
  - ATRIAL FLUTTER [None]
